FAERS Safety Report 11626899 (Version 2)
Quarter: 2015Q4

REPORT INFORMATION
  Report Type: Spontaneous
  Country: US (occurrence: US)
  Receive Date: 20151013
  Receipt Date: 20151027
  Transmission Date: 20160304
  Serious: Yes (Hospitalization, Other)
  Sender: FDA-Public Use
  Company Number: US-SMITH AND NEPHEW, INC-2015SMT00390

PATIENT
  Sex: Female

DRUGS (1)
  1. COLLAGENASE SANTYL [Suspect]
     Active Substance: COLLAGENASE CLOSTRIDIUM HISTOLYTICUM
     Indication: WOUND
     Dosage: UNK UNK, ONCE
     Route: 061
     Dates: start: 201502, end: 201502

REACTIONS (10)
  - Fall [Unknown]
  - Scab [Unknown]
  - Skin disorder [Unknown]
  - Balance disorder [Unknown]
  - Cellulitis [Unknown]
  - Hip fracture [Unknown]
  - Application site pruritus [Unknown]
  - Wound complication [Unknown]
  - Skin exfoliation [Unknown]
  - Wound secretion [Not Recovered/Not Resolved]

NARRATIVE: CASE EVENT DATE: 2015
